FAERS Safety Report 5130117-8 (Version None)
Quarter: 2006Q4

REPORT INFORMATION
  Report Type: 
  Country: None (occurrence: None)
  Receive Date: 20061013
  Receipt Date: 20060922
  Transmission Date: 20070319
  Serious: Yes (Hospitalization, Other)
  Sender: FDA-Public Use
  Company Number: ES200610000875

PATIENT
  Age: 58 Year
  Sex: Female

DRUGS (1)
  1. PROZAC [Suspect]
     Indication: DEPRESSION

REACTIONS (4)
  - DRUG WITHDRAWAL SYNDROME [None]
  - HYPERPARATHYROIDISM PRIMARY [None]
  - MEDICATION ERROR [None]
  - PARATHYROID TUMOUR BENIGN [None]
